FAERS Safety Report 8833817 (Version 1)
Quarter: 2012Q4

REPORT INFORMATION
  Report Type: 
  Country: IT (occurrence: IT)
  Receive Date: 20121010
  Receipt Date: 20121010
  Transmission Date: 20130627
  Serious: Yes (Hospitalization)
  Sender: FDA-Public Use
  Company Number: IT-MYLANLABS-2012S1020291

PATIENT
  Age: 44 Year
  Sex: Female
  Weight: 160 kg

DRUGS (6)
  1. ROCURONIUM BROMIDE [Suspect]
     Indication: ENDOTRACHEAL INTUBATION
     Dosage: 70mg
     Route: 042
  2. ROCURONIUM BROMIDE [Suspect]
     Indication: ENDOTRACHEAL INTUBATION
     Dosage: intermittent doses of 10mg
     Route: 042
  3. NEOSTIGMINE [Concomitant]
     Dosage: 4.5mg
     Route: 065
  4. ATROPINE [Concomitant]
     Dosage: 0.7mg
     Route: 065
  5. PROPOFOL [Concomitant]
     Indication: GENERAL ANAESTHESIA
     Route: 041
  6. REMIFENTANIL [Concomitant]
     Indication: GENERAL ANAESTHESIA
     Route: 065

REACTIONS (2)
  - Neuromuscular block prolonged [Recovered/Resolved]
  - Hypoxia [Recovered/Resolved]
